FAERS Safety Report 5202386-7 (Version None)
Quarter: 2006Q4

REPORT INFORMATION
  Report Type: 
  Country: None (occurrence: None)
  Receive Date: 20061012
  Receipt Date: 20060712
  Transmission Date: 20070319
  Serious: No
  Sender: FDA-Public Use
  Company Number: 2006S1000133

PATIENT
  Age: 70 Year
  Sex: Male
  Weight: 104.5 kg

DRUGS (7)
  1. CUBICIN [Suspect]
     Indication: OSTEOMYELITIS
     Dosage: 4.3 MG/GK;Q24H;IV
     Route: 042
     Dates: start: 20051206, end: 20060307
  2. CUBICIN [Suspect]
     Indication: STAPHYLOCOCCAL INFECTION
     Dosage: 4.3 MG/GK;Q24H;IV
     Route: 042
     Dates: start: 20051206, end: 20060307
  3. LIPITOR [Concomitant]
  4. BETA BLOCKERS [Suspect]
  5. ASPIRIN [Concomitant]
  6. RIFAMPIN [Concomitant]
  7. BACTRIM [Concomitant]

REACTIONS (1)
  - DEAFNESS NEUROSENSORY [None]
